FAERS Safety Report 10918119 (Version 1)
Quarter: 2015Q1

REPORT INFORMATION
  Report Type: Spontaneous
  Country: US (occurrence: US)
  Receive Date: 20150316
  Receipt Date: 20150316
  Transmission Date: 20150721
  Serious: No
  Sender: FDA-Public Use
  Company Number: US-ASTELLAS-2014US019839

PATIENT
  Sex: Male

DRUGS (1)
  1. XTANDI [Suspect]
     Active Substance: ENZALUTAMIDE
     Indication: PROSTATE CANCER
     Route: 048
     Dates: start: 201409

REACTIONS (6)
  - Back pain [Unknown]
  - Prostatic specific antigen abnormal [Unknown]
  - Limb discomfort [Unknown]
  - Hot flush [Unknown]
  - Flushing [Unknown]
  - Bone pain [Unknown]
